FAERS Safety Report 5015886-X (Version None)
Quarter: 2006Q2

REPORT INFORMATION
  Report Type: 
  Country: None (occurrence: None)
  Receive Date: 20060425
  Receipt Date: 20060204
  Transmission Date: 20061013
  Serious: No
  Sender: FDA-Public Use
  Company Number: 218933

PATIENT
  Age: 52 Year
  Sex: Female
  Weight: 74.8 kg

DRUGS (1)
  1. XOLAIR [Suspect]
     Indication: ASTHMA
     Dosage: 150 MG, 1/MONTH, SUBCUTANEOUS
     Route: 058
     Dates: start: 20050901, end: 20050901

REACTIONS (2)
  - DYSPNOEA [None]
  - THROAT TIGHTNESS [None]
